FAERS Safety Report 7492278-5 (Version None)
Quarter: 2011Q2

REPORT INFORMATION
  Report Type: 
  Country: None (occurrence: None)
  Receive Date: 20110519
  Receipt Date: 20101229
  Transmission Date: 20111010
  Serious: No
  Sender: FDA-Public Use
  Company Number: US-NOVEN-ALL1-2010-06656

PATIENT
  Age: 9 Year
  Sex: Female

DRUGS (1)
  1. DAYTRANA [Suspect]
     Indication: ATTENTION DEFICIT/HYPERACTIVITY DISORDER
     Dosage: 10 MG, 1X/DAY; QD
     Route: 062
     Dates: start: 20100101, end: 20100101

REACTIONS (3)
  - IMPULSIVE BEHAVIOUR [None]
  - DISTRACTIBILITY [None]
  - PRODUCT QUALITY ISSUE [None]
